FAERS Safety Report 25848175 (Version 1)
Quarter: 2025Q3

REPORT INFORMATION
  Report Type: Spontaneous
  Country: US (occurrence: US)
  Receive Date: 20250925
  Receipt Date: 20250925
  Transmission Date: 20251020
  Serious: Yes (Other)
  Sender: BAYER HEALTHCARE PHARMACEUTICALS INC.
  Company Number: US-BAYER-2025A124597

PATIENT
  Age: 79 Year
  Sex: Female

DRUGS (13)
  1. ADEMPAS [Suspect]
     Active Substance: RIOCIGUAT
     Indication: Pulmonary hypertension
     Dosage: 0.5 MG, TID
     Route: 048
     Dates: start: 20180309
  2. ADEMPAS [Suspect]
     Active Substance: RIOCIGUAT
     Indication: Pulmonary hypertension
  3. PRADAXA [Suspect]
     Active Substance: DABIGATRAN ETEXILATE MESYLATE
  4. FUROSEMIDE [Concomitant]
     Active Substance: FUROSEMIDE
  5. ALBUTEROL SULFATE [Concomitant]
     Active Substance: ALBUTEROL SULFATE
  6. PANTOPRAZOLE [Concomitant]
     Active Substance: PANTOPRAZOLE
  7. METFORMIN [Concomitant]
     Active Substance: METFORMIN HYDROCHLORIDE
  8. FAMOTIDINE [Concomitant]
     Active Substance: FAMOTIDINE
  9. ATORVASTATIN [Concomitant]
     Active Substance: ATORVASTATIN
  10. FLUCONAZOLE [Concomitant]
     Active Substance: FLUCONAZOLE
  11. LOSARTAN [Concomitant]
     Active Substance: LOSARTAN
  12. LEVOTHYROXINE [Concomitant]
     Active Substance: LEVOTHYROXINE
  13. ELIQUIS [Concomitant]
     Active Substance: APIXABAN

REACTIONS (3)
  - Dyspepsia [Recovering/Resolving]
  - Chest pain [Recovering/Resolving]
  - Gastrooesophageal reflux disease [None]

NARRATIVE: CASE EVENT DATE: 20250819
